FAERS Safety Report 4602060-1 (Version None)
Quarter: 2005Q1

REPORT INFORMATION
  Report Type: 
  Country: None (occurrence: None)
  Receive Date: 20050214
  Receipt Date: 20041101
  Transmission Date: 20050727
  Serious: Yes (Life-Threatening)
  Sender: FDA-Public Use
  Company Number: 8007281

PATIENT
  Sex: Male

DRUGS (3)
  1. KEPPRA [Suspect]
     Indication: CONVULSION
     Dosage: PO
     Route: 048
     Dates: end: 20040101
  2. KEPPRA [Suspect]
     Indication: CONVULSION
     Dosage: 52.5 G 1/D PO
     Route: 048
     Dates: start: 20040101, end: 20040101
  3. KEPPRA [Suspect]
     Indication: CONVULSION
     Dosage: PO
     Route: 048
     Dates: start: 20040101

REACTIONS (3)
  - INTENTIONAL MISUSE [None]
  - SOMNOLENCE [None]
  - SUICIDE ATTEMPT [None]
